FAERS Safety Report 21262937 (Version 1)
Quarter: 2022Q3

REPORT INFORMATION
  Report Type: Report from Study
  Country: IN (occurrence: IN)
  Receive Date: 20220828
  Receipt Date: 20220828
  Transmission Date: 20221026
  Serious: Yes (Other)
  Sender: FDA-Public Use
  Company Number: IN-NOVARTISPH-NVSC2022IN191661

PATIENT
  Age: 47 Year
  Sex: Female

DRUGS (1)
  1. CERITINIB [Suspect]
     Active Substance: CERITINIB
     Indication: Anaplastic lymphoma kinase gene mutation
     Dosage: 450 MG, QD
     Route: 065
     Dates: start: 20211105, end: 20220418

REACTIONS (4)
  - Anaplastic lymphoma kinase gene mutation [Not Recovered/Not Resolved]
  - Malignant neoplasm progression [Not Recovered/Not Resolved]
  - Metastases to lung [Not Recovered/Not Resolved]
  - Drug ineffective [Unknown]

NARRATIVE: CASE EVENT DATE: 20220418
